FAERS Safety Report 17429918 (Version 7)
Quarter: 2023Q4

REPORT INFORMATION
  Report Type: Spontaneous
  Country: US (occurrence: US)
  Receive Date: 20200218
  Receipt Date: 20231201
  Transmission Date: 20240110
  Serious: Yes (Other)
  Sender: FDA-Public Use
  Company Number: US-PFIZER INC-2017479795

PATIENT
  Age: 76 Year
  Sex: Female
  Weight: 82 kg

DRUGS (1)
  1. XALKORI [Suspect]
     Active Substance: CRIZOTINIB
     Indication: Lung neoplasm malignant
     Dosage: 250 MG, 2X/DAY [DIRECTIONS/DOSING INSTRUCTIONS: 1 CAPSULE PO TWICE DAILY]
     Route: 048
     Dates: start: 201612

REACTIONS (3)
  - Dementia [Unknown]
  - Memory impairment [Unknown]
  - General physical health deterioration [Unknown]
